FAERS Safety Report 6758437-1 (Version None)
Quarter: 2010Q2

REPORT INFORMATION
  Report Type: 
  Country: None (occurrence: None)
  Receive Date: 20100607
  Receipt Date: 20100528
  Transmission Date: 20101027
  Serious: Yes (Other)
  Sender: FDA-Public Use
  Company Number: A0851989A

PATIENT
  Age: 58 Year
  Sex: Female
  Weight: 45.5 kg

DRUGS (4)
  1. TYKERB [Suspect]
     Dosage: 1000MG PER DAY
     Route: 048
     Dates: start: 20100101
  2. IMODIUM [Suspect]
  3. HERCEPTIN [Concomitant]
     Dosage: 2MGK WEEKLY
     Route: 042
     Dates: start: 20100101, end: 20100501
  4. ZOMETA [Concomitant]
     Route: 042
     Dates: start: 20100101

REACTIONS (5)
  - DIARRHOEA [None]
  - DRUG INEFFECTIVE [None]
  - HIP FRACTURE [None]
  - TREATMENT NONCOMPLIANCE [None]
  - WEIGHT DECREASED [None]
